FAERS Safety Report 17642205 (Version 1)
Quarter: 2020Q2

REPORT INFORMATION
  Report Type: Spontaneous
  Country: US (occurrence: US)
  Receive Date: 20200408
  Receipt Date: 20200408
  Transmission Date: 20200713
  Serious: No
  Sender: FDA-Public Use
  Company Number: US-ASTRAZENECA-2020SE46256

PATIENT
  Age: 82 Year
  Sex: Female
  Weight: 62.6 kg

DRUGS (5)
  1. NEXIUM 24HR [Suspect]
     Active Substance: ESOMEPRAZOLE MAGNESIUM
     Indication: GASTROOESOPHAGEAL REFLUX DISEASE
     Route: 048
  2. ATENOLOL. [Suspect]
     Active Substance: ATENOLOL
     Route: 065
  3. CRESTOR [Suspect]
     Active Substance: ROSUVASTATIN CALCIUM
     Route: 048
  4. HYDROCHLOROT [Suspect]
     Active Substance: HYDROCHLOROTHIAZIDE
     Indication: BLOOD PRESSURE MEASUREMENT
     Route: 065
  5. CARAFATE [Suspect]
     Active Substance: SUCRALFATE
     Dosage: WHEN NEEDED
     Route: 065

REACTIONS (9)
  - Sleep disorder [Not Recovered/Not Resolved]
  - Therapeutic product effect decreased [Not Recovered/Not Resolved]
  - Gastric disorder [Not Recovered/Not Resolved]
  - Hiatus hernia [Unknown]
  - Swollen tongue [Unknown]
  - Back pain [Unknown]
  - Drug hypersensitivity [Unknown]
  - Glossodynia [Not Recovered/Not Resolved]
  - Lip swelling [Unknown]
